FAERS Safety Report 18569571 (Version 4)
Quarter: 2021Q4

REPORT INFORMATION
  Report Type: Spontaneous
  Country: GB (occurrence: GB)
  Receive Date: 20201202
  Receipt Date: 20211104
  Transmission Date: 20220303
  Serious: Yes (Death, Life-Threatening, Hospitalization, Other)
  Sender: FDA-Public Use
  Company Number: GB-MYLANLABS-2020M1098504

PATIENT
  Age: 77 Year
  Sex: Male

DRUGS (2)
  1. CLOZARIL [Suspect]
     Active Substance: CLOZAPINE
     Indication: Schizophrenia
     Dosage: 100MG NOCTE
     Route: 048
     Dates: start: 20140930, end: 20201119
  2. CLOZARIL [Suspect]
     Active Substance: CLOZAPINE
     Dosage: UNK
     Route: 048
     Dates: start: 20210129, end: 2021

REACTIONS (6)
  - Sepsis [Fatal]
  - Pneumonia [Fatal]
  - Faecaloma [Recovering/Resolving]
  - Constipation [Recovering/Resolving]
  - Delirium [Unknown]
  - Blood test abnormal [Unknown]

NARRATIVE: CASE EVENT DATE: 20200101
